FAERS Safety Report 8834504 (Version 2)
Quarter: 2012Q4

REPORT INFORMATION
  Report Type: 
  Country: US (occurrence: US)
  Receive Date: 20121010
  Receipt Date: 20121128
  Transmission Date: 20130627
  Serious: Yes (Hospitalization, Other)
  Sender: FDA-Public Use
  Company Number: US-ASTRAZENECA-2012SE75927

PATIENT
  Age: 46 Year
  Sex: Male
  Weight: 53 kg

DRUGS (4)
  1. NEXIUM [Suspect]
     Indication: GASTROOESOPHAGEAL REFLUX DISEASE
     Route: 048
     Dates: start: 201107
  2. OMEPRAZOLE [Suspect]
     Route: 048
  3. DEXILANT [Concomitant]
  4. NORCO [Concomitant]
     Dosage: 1 TO 2 TABLETS Q 6H PRN

REACTIONS (21)
  - Gastrooesophageal reflux disease [Unknown]
  - Gastritis [Unknown]
  - Immune system disorder [Unknown]
  - Gastric ulcer perforation [Unknown]
  - Pelvic fracture [Unknown]
  - Abdominal pain upper [Unknown]
  - Abnormal loss of weight [Unknown]
  - Diverticulitis [Unknown]
  - Peptic ulcer [Unknown]
  - Diverticulum [Unknown]
  - Impaired gastric emptying [Unknown]
  - Gastric dilatation [Unknown]
  - Splenic lesion [Unknown]
  - Liver disorder [Unknown]
  - Bundle branch block right [Unknown]
  - Sinus rhythm [Unknown]
  - Chronic obstructive pulmonary disease [Unknown]
  - Flatulence [Unknown]
  - Faecal volume increased [Unknown]
  - Nausea [Unknown]
  - Vomiting [Unknown]
